FAERS Safety Report 13234198 (Version 1)
Quarter: 2017Q1

REPORT INFORMATION
  Report Type: Spontaneous
  Country: US (occurrence: US)
  Receive Date: 20170214
  Receipt Date: 20170214
  Transmission Date: 20170428
  Serious: Yes (Other)
  Sender: FDA-Public Use
  Company Number: None

PATIENT
  Age: 60 Year
  Sex: Female

DRUGS (1)
  1. COPAXONE [Suspect]
     Active Substance: GLATIRAMER ACETATE
     Indication: MULTIPLE SCLEROSIS
     Dosage: 40MG THREE TIMES WEEKLY SUBCUTANEOUS INJECTION
     Route: 058
     Dates: start: 20170103, end: 20170213

REACTIONS (4)
  - Dizziness [None]
  - Fear [None]
  - Nausea [None]
  - Injection site pain [None]

NARRATIVE: CASE EVENT DATE: 20170103
